FAERS Safety Report 16270223 (Version 1)
Quarter: 2019Q2

REPORT INFORMATION
  Report Type: Spontaneous
  Country: US (occurrence: US)
  Receive Date: 20190329
  Receipt Date: 20190329
  Transmission Date: 20190711
  Serious: No
  Sender: FDA-Public Use
  Company Number: None

PATIENT
  Age: 76 Year
  Sex: Male

DRUGS (1)
  1. OTREXUP [Suspect]
     Active Substance: METHOTREXATE
     Indication: RHEUMATOID ARTHRITIS
     Dosage: INJECT 22.5MG (0.4ML) SUBCUTANEOUSLY ONCE WEEKLY ON THE SAME DAY EACH WEEK AS DIRECTED
     Route: 058
     Dates: start: 201812

REACTIONS (2)
  - Therapy cessation [None]
  - Surgery [None]
